FAERS Safety Report 19544724 (Version 1)
Quarter: 2021Q3

REPORT INFORMATION
  Report Type: Spontaneous
  Country: GB (occurrence: GB)
  Receive Date: 20210713
  Receipt Date: 20210713
  Transmission Date: 20211014
  Serious: Yes (Other)
  Sender: FDA-Public Use
  Company Number: GB-PFIZER INC-2021571301

PATIENT
  Age: 7 Year
  Sex: Female

DRUGS (11)
  1. OXYGEN. [Concomitant]
     Active Substance: OXYGEN
     Dosage: UNK
  2. FENTANYL CITRATE. [Suspect]
     Active Substance: FENTANYL CITRATE
     Indication: ANAESTHESIA
     Dosage: INFUSION OF BUPIVACAINE 0.1% WITH FENTANYL 2 UG/ML AT 12 ML/HOUR (0.5 ML/KG/HOUR)
     Route: 008
  3. REMIFENTANIL [Suspect]
     Active Substance: REMIFENTANIL
     Dosage: 0.2 UG/KG/MINUTE
  4. PROPOFOL. [Concomitant]
     Active Substance: PROPOFOL
     Indication: ANAESTHESIA
     Dosage: 2 MG/KG
  5. BUPIVACAINE. [Suspect]
     Active Substance: BUPIVACAINE
     Dosage: BUPIVACAINE 0.1% (WITHOUT FENTANYL)
  6. ISOFLURANE. [Concomitant]
     Active Substance: ISOFLURANE
     Indication: MAINTENANCE OF ANAESTHESIA
  7. BUPIVACAINE. [Suspect]
     Active Substance: BUPIVACAINE
     Dosage: INFUSION OF BUPIVACAINE 0.1% WITH FENTANYL 2 UG/ML INTRAOPERATIVELY AT 12 ML/HOUR (0.5 ML/KG/HOUR)
     Route: 008
  8. DOPAMINE [Concomitant]
     Active Substance: DOPAMINE HYDROCHLORIDE
     Indication: BLOOD PRESSURE MANAGEMENT
     Dosage: TITRATED TO EFFECT UP TO A MAXIMUM OF 7.5 UG/KG/MINUTE
  9. BUPIVACAINE. [Suspect]
     Active Substance: BUPIVACAINE
     Dosage: BOLUS OF BUPIVICAINE 0.25 ML/KG 0.25%
  10. REMIFENTANIL [Suspect]
     Active Substance: REMIFENTANIL
     Indication: ANAESTHESIA
     Dosage: 1 UG/KG/MINUTE
  11. ROCURONIUM [Concomitant]
     Active Substance: ROCURONIUM BROMIDE
     Indication: ANAESTHESIA
     Dosage: 1 MG/KG

REACTIONS (3)
  - Heart rate increased [Unknown]
  - Anaesthetic complication [Unknown]
  - Pain [Recovering/Resolving]
